FAERS Safety Report 5734630-1 (Version None)
Quarter: 2008Q2

REPORT INFORMATION
  Report Type: 
  Country: None (occurrence: None)
  Receive Date: 20080508
  Receipt Date: 20080508
  Transmission Date: 20081010
  Serious: Yes (Life-Threatening, Hospitalization)
  Sender: FDA-Public Use
  Company Number: None

PATIENT
  Sex: Male
  Weight: 79.3795 kg

DRUGS (1)
  1. DIGITEK   250 MCG [Suspect]
     Indication: ATRIAL FIBRILLATION
     Dosage: ONE TABLET NOON DAILY
     Dates: start: 20080104, end: 20080113

REACTIONS (4)
  - ABASIA [None]
  - ASTHENIA [None]
  - LETHARGY [None]
  - THERAPEUTIC AGENT TOXICITY [None]
